FAERS Safety Report 6887588-6 (Version None)
Quarter: 2010Q3

REPORT INFORMATION
  Report Type: 
  Country: None (occurrence: None)
  Receive Date: 20100730
  Receipt Date: 20100719
  Transmission Date: 20110219
  Serious: Yes (Other)
  Sender: FDA-Public Use
  Company Number: GB-PFIZER INC-2010067256

PATIENT
  Sex: Female

DRUGS (2)
  1. XALATAN [Suspect]
     Dosage: UNK
     Route: 047
  2. XALATAN [Suspect]
     Dosage: UNK
     Route: 047

REACTIONS (2)
  - ABNORMAL DREAMS [None]
  - HALLUCINATION [None]
